FAERS Safety Report 16080920 (Version 2)
Quarter: 2019Q2

REPORT INFORMATION
  Report Type: Spontaneous
  Country: CA (occurrence: CA)
  Receive Date: 20190316
  Receipt Date: 20190522
  Transmission Date: 20190711
  Serious: Yes (Death, Hospitalization, Other)
  Sender: FDA-Public Use
  Company Number: CA-AUROBINDO-AUR-APL-2019-013758

PATIENT

DRUGS (9)
  1. ASA [Suspect]
     Active Substance: ASPIRIN
     Indication: PRODUCT USED FOR UNKNOWN INDICATION
     Dosage: UNK, 1 EVERY 1 DAY
     Route: 048
  2. QUETIAPINE FILM-COATED TABLET [Suspect]
     Active Substance: QUETIAPINE
     Dosage: 26 MILLIGRAM, ONCE A DAY
     Route: 065
  3. ALCOHOL. [Suspect]
     Active Substance: ALCOHOL
     Indication: PRODUCT USED FOR UNKNOWN INDICATION
     Dosage: UNK
     Route: 048
  4. QUETIAPINE FILM-COATED TABLET [Suspect]
     Active Substance: QUETIAPINE
     Indication: PRODUCT USED FOR UNKNOWN INDICATION
     Dosage: 75 MILLIGRAM, 1 EVERY 1 DAY
     Route: 065
  5. ACETAMINOPHEN. [Suspect]
     Active Substance: ACETAMINOPHEN
     Indication: PRODUCT USED FOR UNKNOWN INDICATION
     Dosage: 40 DOSAGE FORM
     Route: 048
  6. QUETIAPINE FILM-COATED TABLET [Suspect]
     Active Substance: QUETIAPINE
     Dosage: 500 MILLIGRAM, ONCE A DAY
     Route: 065
  7. ATOMOXETINE. [Concomitant]
     Active Substance: ATOMOXETINE HYDROCHLORIDE
     Indication: PRODUCT USED FOR UNKNOWN INDICATION
     Dosage: UNK
     Route: 065
  8. ISONIAZID. [Concomitant]
     Active Substance: ISONIAZID
     Indication: PRODUCT USED FOR UNKNOWN INDICATION
     Dosage: UNK
     Route: 065
  9. CITALOPRAM [Concomitant]
     Active Substance: CITALOPRAM HYDROBROMIDE
     Indication: PRODUCT USED FOR UNKNOWN INDICATION
     Dosage: UNK
     Route: 065

REACTIONS (22)
  - Intentional overdose [Fatal]
  - Completed suicide [Fatal]
  - Face oedema [Fatal]
  - Toxicity to various agents [Fatal]
  - Hepatitis [Fatal]
  - Pleural effusion [Fatal]
  - Multiple organ dysfunction syndrome [Fatal]
  - Treatment noncompliance [Fatal]
  - Agitation [Fatal]
  - Encephalopathy [Fatal]
  - Hepatic congestion [Fatal]
  - Liver injury [Fatal]
  - Myalgia [Fatal]
  - Seizure [Fatal]
  - Oxygen saturation decreased [Fatal]
  - Myocarditis [Fatal]
  - Cardiac failure [Fatal]
  - Cardiac arrest [Fatal]
  - Nausea [Fatal]
  - Oedema peripheral [Fatal]
  - Pericardial effusion [Fatal]
  - Hepatic encephalopathy [Fatal]
